FAERS Safety Report 4866673-4 (Version None)
Quarter: 2005Q4

REPORT INFORMATION
  Report Type: 
  Country: None (occurrence: None)
  Receive Date: 20051221
  Receipt Date: 20051208
  Transmission Date: 20060501
  Serious: Yes (Hospitalization)
  Sender: FDA-Public Use
  Company Number: 2005168006

PATIENT
  Age: 78 Year
  Sex: Female

DRUGS (8)
  1. XALATAN [Suspect]
     Indication: GLAUCOMA
     Dosage: (1 IN 1 D), OPHTHALMIC
     Route: 047
     Dates: start: 20000721, end: 20040101
  2. .. [Concomitant]
  3. .. [Concomitant]
  4. .. [Concomitant]
  5. .. [Concomitant]
  6. .. [Concomitant]
  7. .. [Concomitant]
  8. .. [Concomitant]

REACTIONS (3)
  - COMA [None]
  - INFLUENZA [None]
  - PNEUMONIA [None]
